FAERS Safety Report 16206264 (Version 1)
Quarter: 2019Q2

REPORT INFORMATION
  Report Type: Spontaneous
  Country: US (occurrence: US)
  Receive Date: 20190416
  Receipt Date: 20190416
  Transmission Date: 20190711
  Serious: Yes (Other)
  Sender: FDA-Public Use
  Company Number: None

PATIENT
  Age: 84 Year
  Sex: Male
  Weight: 108.9 kg

DRUGS (12)
  1. LEVOTHYROXINE. [Concomitant]
     Active Substance: LEVOTHYROXINE
  2. FIRMAGON [Concomitant]
     Active Substance: DEGARELIX ACETATE
  3. WARFARIN [Concomitant]
     Active Substance: WARFARIN
  4. SIMVASTATIN. [Concomitant]
     Active Substance: SIMVASTATIN
  5. FUROSEMIDE. [Concomitant]
     Active Substance: FUROSEMIDE
  6. VITAMIN D NOS [Concomitant]
     Active Substance: VITAMIN D NOS
  7. ABIRATERONE. [Suspect]
     Active Substance: ABIRATERONE ACETATE
     Indication: PROSTATE CANCER
     Route: 048
     Dates: start: 20181210, end: 20190412
  8. SPIRONOLACTONE. [Concomitant]
     Active Substance: SPIRONOLACTONE
  9. FINASTERIDE. [Concomitant]
     Active Substance: FINASTERIDE
  10. PREDNISONE. [Concomitant]
     Active Substance: PREDNISONE
  11. ASPIRIN. [Concomitant]
     Active Substance: ASPIRIN
  12. CALCIUM 600 [Concomitant]
     Active Substance: CALCIUM

REACTIONS (2)
  - Disease progression [None]
  - Laboratory test abnormal [None]

NARRATIVE: CASE EVENT DATE: 20190412
